FAERS Safety Report 5285541-X (Version None)
Quarter: 2007Q1

REPORT INFORMATION
  Report Type: 
  Country: None (occurrence: None)
  Receive Date: 20061227
  Receipt Date: 20060203
  Transmission Date: 20070707
  Serious: Yes (Hospitalization)
  Sender: FDA-Public Use
  Company Number: RENA-11679

PATIENT
  Age: 78 Year
  Sex: Female
  Weight: 65.7716 kg

DRUGS (13)
  1. RENAGEL [Suspect]
     Indication: HYPERPHOSPHATAEMIA
     Dosage: 0.8 G TID; PO
     Route: 048
     Dates: start: 20060301, end: 20060317
  2. MELPHALAN [Suspect]
     Indication: MULTIPLE MYELOMA
  3. PREDNISONE TAB [Suspect]
     Indication: MULTIPLE MYELOMA
  4. SYNTHROID [Concomitant]
  5. ACTOS [Concomitant]
  6. COUMADIN [Concomitant]
  7. QUINAPRIL [Concomitant]
  8. PROTONIX [Concomitant]
  9. AMITRIPTYLINE HCL [Concomitant]
  10. LEXAPRO [Concomitant]
  11. GLIPIZIDE [Concomitant]
  12. PERCOCET [Concomitant]
  13. NEPHROCAPS [Concomitant]

REACTIONS (1)
  - PLATELET COUNT DECREASED [None]
